FAERS Safety Report 19076828 (Version 1)
Quarter: 2021Q1

REPORT INFORMATION
  Report Type: Report from Study
  Country: PK (occurrence: PK)
  Receive Date: 20210331
  Receipt Date: 20210331
  Transmission Date: 20210420
  Serious: Yes (Death)
  Sender: FDA-Public Use
  Company Number: NVSC2021PK072957

PATIENT
  Age: 60 Year

DRUGS (1)
  1. GLIVEC [Suspect]
     Active Substance: IMATINIB MESYLATE
     Indication: GASTROINTESTINAL STROMAL TUMOUR
     Dosage: 40 MG, QD
     Route: 048
     Dates: start: 20181018

REACTIONS (1)
  - Death [Fatal]

NARRATIVE: CASE EVENT DATE: 20200101
